FAERS Safety Report 5179193-7 (Version None)
Quarter: 2006Q4

REPORT INFORMATION
  Report Type: 
  Country: None (occurrence: None)
  Receive Date: 20061211
  Receipt Date: 20061124
  Transmission Date: 20070319
  Serious: Yes (Other)
  Sender: FDA-Public Use
  Company Number: 2006RR-04687

PATIENT
  Age: 56 Year
  Sex: Female

DRUGS (6)
  1. MINOCYCLINE HYDROCHLORIDE [Suspect]
     Indication: ARTHRITIS
     Dosage: 100 MG, BID,
  2. AZATHIOPRINE [Concomitant]
  3. CYCLOSPORINE [Concomitant]
  4. HYDROCHLOROTHIAZIDE [Concomitant]
  5. PREDNISOLONE [Concomitant]
  6. SULFASALAZINE [Concomitant]

REACTIONS (4)
  - NAIL DISCOLOURATION [None]
  - SKIN HYPERPIGMENTATION [None]
  - TONGUE DISCOLOURATION [None]
  - TOOTH DISCOLOURATION [None]
